FAERS Safety Report 10822314 (Version 2)
Quarter: 2015Q1

REPORT INFORMATION
  Report Type: Spontaneous
  Country: US (occurrence: None)
  Receive Date: 20150213
  Receipt Date: 20150226
  Transmission Date: 20150721
  Serious: Yes (Hospitalization, Other)
  Sender: FDA-Public Use
  Company Number: ADR-2014-01785

PATIENT
  Age: 52 Year
  Sex: Male

DRUGS (2)
  1. BACLOFEN. [Suspect]
     Active Substance: BACLOFEN
     Dosage: ORAL 5 MG TID PRN.
     Route: 048
  2. LIORESAL [Suspect]
     Active Substance: BACLOFEN
     Indication: MUSCLE SPASTICITY

REACTIONS (10)
  - Treatment noncompliance [None]
  - Implant site erosion [None]
  - Decubitus ulcer [None]
  - Extradural abscess [None]
  - Skin disorder [None]
  - Implant site ulcer [None]
  - Underweight [None]
  - Implant site reaction [None]
  - Hypophagia [None]
  - Drug dose omission [None]
